FAERS Safety Report 4813610-4 (Version None)
Quarter: 2005Q4

REPORT INFORMATION
  Report Type: 
  Country: None (occurrence: None)
  Receive Date: 20051028
  Receipt Date: 20050303
  Transmission Date: 20060501
  Serious: No
  Sender: FDA-Public Use
  Company Number: US-GLAXOSMITHKLINE-A0548040A

PATIENT
  Age: 80 Year
  Sex: Female
  Weight: 55.2 kg

DRUGS (2)
  1. ADVAIR DISKUS 100/50 [Suspect]
     Indication: DRUG USE FOR UNKNOWN INDICATION
     Route: 055
     Dates: start: 20030813, end: 20041122
  2. SEREVENT [Concomitant]
     Route: 055

REACTIONS (2)
  - CANDIDIASIS [None]
  - DIZZINESS [None]
